FAERS Safety Report 13175293 (Version 2)
Quarter: 2017Q1

REPORT INFORMATION
  Report Type: Spontaneous
  Country: DE (occurrence: DE)
  Receive Date: 20170201
  Receipt Date: 20170329
  Transmission Date: 20170428
  Serious: Yes (Other)
  Sender: FDA-Public Use
  Company Number: DE-JNJFOC-20170125014

PATIENT
  Age: 8 Decade
  Sex: Male

DRUGS (3)
  1. ELIQUIS [Suspect]
     Active Substance: APIXABAN
     Indication: ARRHYTHMIA
     Route: 065
  2. IMBRUVICA [Suspect]
     Active Substance: IBRUTINIB
     Indication: CHRONIC LYMPHOCYTIC LEUKAEMIA
     Route: 048
     Dates: start: 20170105
  3. ELIQUIS [Suspect]
     Active Substance: APIXABAN
     Indication: ARRHYTHMIA
     Route: 065

REACTIONS (5)
  - Rash [Unknown]
  - Thrombocytopenia [Unknown]
  - Petechiae [Unknown]
  - Internal haemorrhage [Unknown]
  - Haematoma [Unknown]
